FAERS Safety Report 25327525 (Version 1)
Quarter: 2025Q2

REPORT INFORMATION
  Report Type: Spontaneous
  Country: RU (occurrence: RU)
  Receive Date: 20250517
  Receipt Date: 20250517
  Transmission Date: 20250717
  Serious: Yes (Hospitalization, Other)
  Sender: AMGEN
  Company Number: RU-AMGEN-RUSSP2025090999

PATIENT
  Age: 20 Year
  Sex: Male

DRUGS (6)
  1. FILGRASTIM [Suspect]
     Active Substance: FILGRASTIM
     Indication: Agranulocytosis
     Dosage: QWK, 48 MILLION OF ACTIVITY UNITS 1 TIME PER WEEK
     Route: 065
     Dates: start: 2021, end: 2024
  2. RITUXIMAB [Concomitant]
     Active Substance: RITUXIMAB
     Dosage: 375 MILLIGRAM, QWK
     Route: 040
     Dates: start: 2021
  3. ANAKINRA [Concomitant]
     Active Substance: ANAKINRA
     Dosage: UNK, QD (150 MG/0.67 ML SUBCUTANEOUSLY ONCE A DAY)
     Route: 058
     Dates: start: 202210, end: 202303
  4. VALGANCICLOVIR [Concomitant]
     Active Substance: VALGANCICLOVIR
     Route: 065
  5. RUXOLITINIB [Concomitant]
     Active Substance: RUXOLITINIB
     Dosage: 5 MILLIGRAM, BID
     Route: 065
     Dates: start: 202401
  6. PREDNISOLONE [Concomitant]
     Active Substance: PREDNISOLONE
     Route: 048

REACTIONS (22)
  - Neutropenia [Recovering/Resolving]
  - Type III immune complex mediated reaction [Unknown]
  - Pseudomonas infection [Unknown]
  - Hypogammaglobulinaemia [Unknown]
  - Thrombocytopenia [Unknown]
  - Primary immunodeficiency syndrome [Unknown]
  - Chronic hepatitis [Unknown]
  - Hepatomegaly [Not Recovered/Not Resolved]
  - Lymphadenopathy [Not Recovered/Not Resolved]
  - Pyrexia [Unknown]
  - Epistaxis [Unknown]
  - Mouth ulceration [Unknown]
  - Arthralgia [Unknown]
  - Joint swelling [Recovering/Resolving]
  - Shoulder girdle pain [Unknown]
  - Hyperproteinaemia [Unknown]
  - Hypergammaglobulinaemia [Unknown]
  - Red blood cell sedimentation rate increased [Unknown]
  - Gingival pain [Unknown]
  - Cytomegalovirus test positive [Unknown]
  - Candida infection [Unknown]
  - Mouth ulceration [Unknown]

NARRATIVE: CASE EVENT DATE: 20210101
